FAERS Safety Report 6960231-3 (Version None)
Quarter: 2010Q3

REPORT INFORMATION
  Report Type: 
  Country: None (occurrence: None)
  Receive Date: 20100901
  Receipt Date: 20100825
  Transmission Date: 20110219
  Serious: Yes (Other)
  Sender: FDA-Public Use
  Company Number: MX-ELI_LILLY_AND_COMPANY-MX201008007315

PATIENT
  Age: 70 Year
  Sex: Female
  Weight: 58 kg

DRUGS (6)
  1. HUMULIN 70/30 [Suspect]
     Indication: DIABETES MELLITUS
     Dosage: 38 UL, DAILY (1/D)
     Route: 058
     Dates: start: 20000101
  2. TRAMADOL HCL [Concomitant]
     Indication: HIP FRACTURE
     Dosage: UNK, UNKNOWN
     Route: 065
  3. GABAPENTIN [Concomitant]
     Indication: HIP SURGERY
     Dosage: UNK, UNKNOWN
     Route: 065
  4. COMPLEX B [Concomitant]
     Indication: HIP SURGERY
     Dosage: UNK, UNKNOWN
     Route: 065
  5. PLAVIX [Concomitant]
     Indication: CARDIAC DISORDER
     Dosage: UNK, UNKNOWN
     Route: 065
  6. ASPIRIN [Concomitant]
     Indication: CARDIAC DISORDER
     Dosage: UNK, UNKNOWN
     Route: 065

REACTIONS (2)
  - HIP FRACTURE [None]
  - MYOCARDIAL INFARCTION [None]
